FAERS Safety Report 5048520-3 (Version None)
Quarter: 2006Q3

REPORT INFORMATION
  Report Type: 
  Country: None (occurrence: None)
  Receive Date: 20060712
  Receipt Date: 20060322
  Transmission Date: 20061208
  Serious: Yes (Hospitalization)
  Sender: FDA-Public Use
  Company Number: 2006CG00558

PATIENT
  Age: 16140 Day
  Sex: Female
  Weight: 48 kg

DRUGS (7)
  1. MARCAINE [Suspect]
     Indication: LOCAL ANAESTHESIA
     Route: 053
     Dates: start: 20060313, end: 20060316
  2. MARCAINE [Suspect]
     Indication: POSTOPERATIVE ANALGESIA
     Route: 053
     Dates: start: 20060313, end: 20060316
  3. MARCAINE RACHIANESTHESIE [Concomitant]
     Indication: SPINAL ANAESTHESIA
     Route: 037
     Dates: start: 20060313, end: 20060313
  4. PARACETAMOL [Concomitant]
     Indication: ANALGESIC EFFECT
     Route: 048
     Dates: start: 20060313, end: 20060317
  5. DICLOFENAC [Concomitant]
     Route: 048
     Dates: start: 20060313, end: 20060317
  6. MORPHINE [Concomitant]
     Indication: ANALGESIC EFFECT
     Route: 042
     Dates: start: 20060313, end: 20060313
  7. LOVENOX [Concomitant]
     Indication: ANTICOAGULANT THERAPY
     Route: 058
     Dates: start: 20060313, end: 20060406

REACTIONS (2)
  - ARTERIAL RUPTURE [None]
  - CATHETER SITE HAEMORRHAGE [None]
